FAERS Safety Report 6703576-4 (Version None)
Quarter: 2010Q2

REPORT INFORMATION
  Report Type: 
  Country: None (occurrence: None)
  Receive Date: 20100430
  Receipt Date: 20100426
  Transmission Date: 20101027
  Serious: Yes (Death)
  Sender: FDA-Public Use
  Company Number: PHHY2010CA26566

PATIENT
  Sex: Female

DRUGS (1)
  1. ZOMETA [Suspect]
     Indication: LUNG CANCER METASTATIC
     Route: 042

REACTIONS (1)
  - DEATH [None]
